FAERS Safety Report 22227947 (Version 2)
Quarter: 2023Q2

REPORT INFORMATION
  Report Type: Spontaneous
  Country: CA (occurrence: CA)
  Receive Date: 20230419
  Receipt Date: 20230425
  Transmission Date: 20230722
  Serious: Yes (Death, Other)
  Sender: FDA-Public Use
  Company Number: CA-PFIZER INC-202300157305

PATIENT
  Age: 55 Year
  Sex: Male

DRUGS (5)
  1. TRIAZOLAM [Interacting]
     Active Substance: TRIAZOLAM
     Dosage: UNK
  2. SECOBARBITAL [Interacting]
     Active Substance: SECOBARBITAL
     Dosage: UNK
  3. AMOBARBITAL [Interacting]
     Active Substance: AMOBARBITAL
     Dosage: UNK
  4. ALPRAZOLAM [Interacting]
     Active Substance: ALPRAZOLAM
     Dosage: UNK
  5. BROMAZEPAM [Interacting]
     Active Substance: BROMAZEPAM
     Dosage: UNK

REACTIONS (2)
  - Alcohol interaction [Fatal]
  - Toxicity to various agents [Fatal]
